FAERS Safety Report 6805700-1 (Version None)
Quarter: 2010Q2

REPORT INFORMATION
  Report Type: 
  Country: None (occurrence: None)
  Receive Date: 20100628
  Receipt Date: 20090726
  Transmission Date: 20101027
  Serious: No
  Sender: FDA-Public Use
  Company Number: US-PFIZER INC-2007010254

PATIENT
  Sex: Male

DRUGS (6)
  1. CABERGOLINE [Suspect]
     Indication: HYPERPROLACTINAEMIA
     Dosage: 0.25MG TWICE A WEEK
     Dates: start: 20060101
  2. DOSTINEX [Suspect]
  3. ZOCOR [Concomitant]
  4. VALIUM [Concomitant]
  5. ANDROGEL [Concomitant]
  6. SYNTHROID [Concomitant]

REACTIONS (6)
  - BLOOD PROLACTIN INCREASED [None]
  - DIARRHOEA [None]
  - DIZZINESS [None]
  - DYSPEPSIA [None]
  - HEADACHE [None]
  - NAUSEA [None]
